FAERS Safety Report 24268567 (Version 4)
Quarter: 2025Q1

REPORT INFORMATION
  Report Type: Spontaneous
  Country: US (occurrence: US)
  Receive Date: 20240830
  Receipt Date: 20250306
  Transmission Date: 20250409
  Serious: No
  Sender: ROCHE
  Company Number: US-ROCHE-3554118

PATIENT
  Age: 18 Year
  Sex: Male

DRUGS (3)
  1. HEMLIBRA [Suspect]
     Active Substance: EMICIZUMAB-KXWH
     Indication: Factor VIII deficiency
     Dosage: STRENGTH-150MG/ML
     Route: 058
     Dates: start: 202211
  2. HEMLIBRA [Suspect]
     Active Substance: EMICIZUMAB-KXWH
     Dosage: STRENGTH- 60MG/0.4ML
     Route: 058
     Dates: start: 202211
  3. ALTUVIIIO [Concomitant]
     Active Substance: EFANESOCTOCOG ALFA

REACTIONS (3)
  - Contusion [Unknown]
  - Haemorrhage [Unknown]
  - Limb injury [Unknown]

NARRATIVE: CASE EVENT DATE: 20240821
